FAERS Safety Report 5469306-1 (Version None)
Quarter: 2007Q3

REPORT INFORMATION
  Report Type: 
  Country: None (occurrence: None)
  Receive Date: 20070924
  Receipt Date: 20070906
  Transmission Date: 20080115
  Serious: Yes (Hospitalization)
  Sender: FDA-Public Use
  Company Number: 100#08#2007-03446

PATIENT
  Age: 12 Year
  Sex: Female

DRUGS (2)
  1. METHYLPREDNISOLONE [Suspect]
     Indication: NEPHROTIC SYNDROME
     Dosage: 30 MG/KG EVERY OTER DAY (V PULSE THERAPY), }1 MG/KG DAY (ON PRESENTATION), EVERY OTHER DAY FOR 2 WEE
     Route: 042
  2. RISPERIDONE [Suspect]
     Indication: PSYCHOTIC DISORDER
     Dosage: 1 MG AT NIGHT;

REACTIONS (13)
  - ABNORMAL BEHAVIOUR [None]
  - ANXIETY [None]
  - FEAR [None]
  - FEAR OF DEATH [None]
  - HALLUCINATION, AUDITORY [None]
  - HALLUCINATION, VISUAL [None]
  - HYPOALBUMINAEMIA [None]
  - INSOMNIA [None]
  - PERSECUTORY DELUSION [None]
  - PROTEINURIA [None]
  - PSYCHOTIC DISORDER [None]
  - SEDATION [None]
  - SLEEP DISORDER [None]
